FAERS Safety Report 9116855 (Version 2)
Quarter: 2013Q1

REPORT INFORMATION
  Report Type: Spontaneous
  Country: BR (occurrence: BR)
  Receive Date: 20130225
  Receipt Date: 20130320
  Transmission Date: 20140127
  Serious: Yes (Hospitalization, Other)
  Sender: FDA-Public Use
  Company Number: PHHY2012BR110117

PATIENT
  Sex: Female
  Weight: 54 kg

DRUGS (5)
  1. SANDOSTATIN LAR [Suspect]
     Indication: HEAD AND NECK CANCER
     Dosage: 30 MG, MONTHLY
     Dates: start: 2005
  2. INSULIN [Concomitant]
     Dosage: UNK UKN, UNK
  3. METFORMIN [Concomitant]
     Dosage: UNK UKN, UNK
  4. FLUOXETINE [Concomitant]
     Dosage: UNK UKN, UNK
  5. CLOXAZOLAM [Concomitant]
     Dosage: UNK UKN, UNK

REACTIONS (5)
  - Pulmonary mass [Unknown]
  - Weight decreased [Unknown]
  - Cough [Unknown]
  - Malaise [Not Recovered/Not Resolved]
  - Therapeutic response decreased [Unknown]
